FAERS Safety Report 8377254 (Version 2)
Quarter: 2013Q2

REPORT INFORMATION
  Report Type: Spontaneous
  Country: US (occurrence: None)
  Receive Date: 20111221
  Receipt Date: 20121227
  Transmission Date: 20140414
  Serious: Yes (Hospitalization)
  Sender: FDA-Public Use
  Company Number: PHHY2011US12238

PATIENT
  Age: 42 Year
  Sex: Female
  Weight: 66.6 kg

DRUGS (7)
  1. EXJADE [Suspect]
     Indication: IRON OVERLOAD
     Dosage: 500 MG, QD, ORAL
     Route: 048
     Dates: start: 201008
  2. EXJADE [Suspect]
     Indication: SICKLE CELL ANAEMIA
     Dosage: 500 MG, QD, ORAL
     Route: 048
     Dates: start: 201008
  3. FOLIC ACID [Concomitant]
  4. CELEBREX [Concomitant]
  5. COUMADIN [Concomitant]
  6. PLAQUENIL [Concomitant]
  7. PREDNISOLONE [Concomitant]

REACTIONS (1)
  - SICKLE CELL ANAEMIA WITH CRISIS [None]
